FAERS Safety Report 4461304-X (Version None)
Quarter: 2004Q3

REPORT INFORMATION
  Report Type: 
  Country: None (occurrence: None)
  Receive Date: 20040928
  Receipt Date: 20040913
  Transmission Date: 20050211
  Serious: Yes (Hospitalization)
  Sender: FDA-Public Use
  Company Number: JP-GLAXOSMITHKLINE-B0345555A

PATIENT
  Age: 90 Year
  Sex: Male
  Weight: 52 kg

DRUGS (9)
  1. VALTREX [Suspect]
     Indication: HERPES ZOSTER
     Dosage: 500MG TWICE PER DAY
     Route: 048
     Dates: start: 20040811, end: 20040814
  2. PANALDINE [Concomitant]
     Indication: CEREBROVASCULAR DISORDER
     Dosage: 200MG PER DAY
     Route: 048
  3. BLOPRESS [Concomitant]
     Route: 048
  4. NU-LOTAN [Concomitant]
     Indication: HYPERTENSION
     Dosage: 25MG PER DAY
     Route: 048
  5. ALFAROL [Concomitant]
     Indication: RENAL OSTEODYSTROPHY
     Dosage: .25MCG PER DAY
     Route: 048
  6. CALTAN [Concomitant]
     Indication: RENAL OSTEODYSTROPHY
     Dosage: 3000MG PER DAY
     Route: 048
  7. YODEL S [Concomitant]
     Indication: CONSTIPATION
     Dosage: 160MG PER DAY
     Route: 048
  8. LOXONIN [Concomitant]
     Route: 048
  9. SELBEX [Concomitant]
     Route: 048

REACTIONS (3)
  - DEPRESSED LEVEL OF CONSCIOUSNESS [None]
  - GAIT DISTURBANCE [None]
  - INCOHERENT [None]
